FAERS Safety Report 5694016-5 (Version None)
Quarter: 2008Q2

REPORT INFORMATION
  Report Type: 
  Country: None (occurrence: None)
  Receive Date: 20080401
  Receipt Date: 20080322
  Transmission Date: 20081010
  Serious: Yes (Other)
  Sender: FDA-Public Use
  Company Number: CHPA2008US03957

PATIENT
  Age: 30 Year
  Sex: Female

DRUGS (1)
  1. NODOZ (NCH)(CAFFEINE) CAPLET [Suspect]
     Indication: SOMNOLENCE
     Dosage: 200 MG TO 400 MG, ORAL
     Route: 048

REACTIONS (2)
  - HEADACHE [None]
  - INCORRECT DOSE ADMINISTERED [None]
